FAERS Safety Report 9404378 (Version 1)
Quarter: 2013Q3

REPORT INFORMATION
  Report Type: Spontaneous
  Country: FR (occurrence: FR)
  Receive Date: 20130717
  Receipt Date: 20130717
  Transmission Date: 20140515
  Serious: Yes (Hospitalization)
  Sender: FDA-Public Use
  Company Number: FR-US-EMD SERONO, INC.-7223727

PATIENT
  Age: 39 Year
  Sex: Female

DRUGS (7)
  1. REBIF [Suspect]
     Indication: MULTIPLE SCLEROSIS
     Route: 058
     Dates: start: 20121018
  2. GABAPENTIN [Concomitant]
     Indication: NEURALGIA
     Route: 048
  3. MANTADIX [Concomitant]
     Indication: PRODUCT USED FOR UNKNOWN INDICATION
     Dates: start: 20130529
  4. LYRICA [Concomitant]
     Indication: NEURALGIA
  5. RIVOTRIL [Concomitant]
     Indication: NEURALGIA
     Dates: start: 20130220
  6. RIVOTRIL [Concomitant]
     Indication: TREMOR
  7. RIVOTRIL [Concomitant]
     Indication: DYSKINESIA

REACTIONS (2)
  - Weight decreased [Recovering/Resolving]
  - Hepatic enzyme increased [Unknown]
